FAERS Safety Report 9242835 (Version 3)
Quarter: 2013Q3

REPORT INFORMATION
  Report Type: Report from Study
  Country: BR (occurrence: BR)
  Receive Date: 20130419
  Receipt Date: 20130812
  Transmission Date: 20140515
  Serious: Yes (Other)
  Sender: FDA-Public Use
  Company Number: PHHY2013BR037397

PATIENT
  Age: 37 Year
  Sex: Male

DRUGS (3)
  1. DIOVAN [Suspect]
     Dosage: 320 MG, WHEN PRESSURE CHANGED
     Route: 048
  2. SONRIDOR CAF [Concomitant]
     Indication: MIGRAINE
     Dosage: UNK UKN, AS NEEDED
     Route: 048
  3. DIOVAN [Suspect]
     Indication: BLOOD PRESSURE
     Dosage: 160 MG, QD
     Route: 048

REACTIONS (5)
  - Accident at work [Recovered/Resolved]
  - Thermal burn [Recovered/Resolved]
  - Mood altered [Recovered/Resolved]
  - Anxiety [Recovered/Resolved]
  - Blood pressure fluctuation [Recovered/Resolved]
